FAERS Safety Report 13404533 (Version 1)
Quarter: 2017Q2

REPORT INFORMATION
  Report Type: Spontaneous
  Country: IT (occurrence: IT)
  Receive Date: 20170405
  Receipt Date: 20170405
  Transmission Date: 20170830
  Serious: Yes (Other)
  Sender: FDA-Public Use
  Company Number: IT-ACCORD-049787

PATIENT
  Age: 48 Year
  Sex: Male
  Weight: 75 kg

DRUGS (1)
  1. CISPLATIN ACCORD [Suspect]
     Active Substance: CISPLATIN
     Indication: GASTRIC NEOPLASM
     Dosage: STRENGTH: 1MG/ML
     Dates: start: 20160208, end: 20160613

REACTIONS (2)
  - Phlebitis [Recovered/Resolved with Sequelae]
  - Off label use [Unknown]

NARRATIVE: CASE EVENT DATE: 20160613
